FAERS Safety Report 6912485-7 (Version None)
Quarter: 2010Q3

REPORT INFORMATION
  Report Type: 
  Country: None (occurrence: None)
  Receive Date: 20100806
  Receipt Date: 20080609
  Transmission Date: 20110219
  Serious: Yes (Other)
  Sender: FDA-Public Use
  Company Number: US-PFIZER INC-2008040574

PATIENT
  Sex: Female
  Weight: 104.3 kg

DRUGS (6)
  1. DETROL LA [Suspect]
     Indication: BLADDER DISORDER
     Route: 048
     Dates: start: 20051018
  2. SYNTHROID [Concomitant]
  3. VALSARTAN [Concomitant]
  4. METFORMIN HCL [Concomitant]
  5. PRAVACHOL [Concomitant]
  6. TRIAMTERENE [Concomitant]

REACTIONS (5)
  - BRONCHITIS [None]
  - DIABETES MELLITUS [None]
  - DRUG INEFFECTIVE [None]
  - SINUSITIS [None]
  - SWELLING [None]
